FAERS Safety Report 24617489 (Version 7)
Quarter: 2025Q4

REPORT INFORMATION
  Report Type: Spontaneous
  Country: US (occurrence: US)
  Receive Date: 20241114
  Receipt Date: 20251018
  Transmission Date: 20260118
  Serious: Yes (Other)
  Sender: NOVARTIS
  Company Number: US-002147023-NVSC2024US219607

PATIENT
  Sex: Female
  Weight: 54 kg

DRUGS (1)
  1. KESIMPTA [Suspect]
     Active Substance: OFATUMUMAB
     Indication: Relapsing multiple sclerosis
     Dosage: 20 MG, QMO
     Route: 065

REACTIONS (8)
  - Multiple sclerosis [Unknown]
  - Dysphagia [Unknown]
  - Gait disturbance [Unknown]
  - Decreased gait velocity [Unknown]
  - Muscle spasticity [Unknown]
  - Burning sensation [Unknown]
  - Tight hamstring syndrome [Unknown]
  - Pelvic misalignment [Unknown]
